FAERS Safety Report 18104398 (Version 1)
Quarter: 2020Q3

REPORT INFORMATION
  Report Type: Spontaneous
  Country: US (occurrence: US)
  Receive Date: 20200803
  Receipt Date: 20200803
  Transmission Date: 20201103
  Serious: Yes (Hospitalization)
  Sender: FDA-Public Use
  Company Number: None

PATIENT
  Age: 66 Year
  Sex: Male

DRUGS (13)
  1. FENOFIBRATE. [Concomitant]
     Active Substance: FENOFIBRATE
  2. METOPROLOL TARTRATE. [Concomitant]
     Active Substance: METOPROLOL TARTRATE
  3. PROBENECID. [Concomitant]
     Active Substance: PROBENECID
  4. ROSUVASTATIN. [Concomitant]
     Active Substance: ROSUVASTATIN
  5. COSENTYX [Suspect]
     Active Substance: SECUKINUMAB
     Indication: PRODUCT USED FOR UNKNOWN INDICATION
     Dosage: ?          OTHER FREQUENCY:Q28DAYS;?
     Route: 058
     Dates: start: 20160525
  6. NIACIN. [Concomitant]
     Active Substance: NIACIN
  7. TACROLIMUS. [Concomitant]
     Active Substance: TACROLIMUS
  8. ASPIRIN. [Concomitant]
     Active Substance: ASPIRIN
  9. LOSARTAN. [Concomitant]
     Active Substance: LOSARTAN
  10. CETIRIZINE [Concomitant]
     Active Substance: CETIRIZINE HYDROCHLORIDE
  11. METFORMIN [Concomitant]
     Active Substance: METFORMIN HYDROCHLORIDE
  12. CLOBETASOL [Concomitant]
     Active Substance: CLOBETASOL
  13. MUPIROCIN. [Concomitant]
     Active Substance: MUPIROCIN

REACTIONS (1)
  - Surgery [None]

NARRATIVE: CASE EVENT DATE: 20200722
